FAERS Safety Report 19477891 (Version 1)
Quarter: 2021Q2

REPORT INFORMATION
  Report Type: Report from Study
  Country: BR (occurrence: BR)
  Receive Date: 20210630
  Receipt Date: 20210630
  Transmission Date: 20210717
  Serious: Yes (Life-Threatening, Hospitalization)
  Sender: FDA-Public Use
  Company Number: BR-JNJFOC-20210655977

PATIENT
  Age: 43 Year
  Sex: Female
  Weight: 95 kg

DRUGS (5)
  1. TOCILIZUMAB. [Concomitant]
     Active Substance: TOCILIZUMAB
     Indication: RHEUMATOID ARTHRITIS
     Route: 042
     Dates: start: 20200823
  2. LAMOTRIGINE. [Concomitant]
     Active Substance: LAMOTRIGINE
     Indication: DEPRESSION
     Route: 048
     Dates: start: 20180309
  3. RAMELTEON [Concomitant]
     Active Substance: RAMELTEON
     Indication: INSOMNIA
     Route: 048
     Dates: start: 20210526
  4. ESKETAMINE [Suspect]
     Active Substance: ESKETAMINE
     Indication: DEPRESSION
     Dates: start: 20170925
  5. LIRAGLUTIDE [Concomitant]
     Active Substance: LIRAGLUTIDE
     Indication: INCREASED APPETITE
     Route: 058
     Dates: start: 20210413

REACTIONS (1)
  - Poisoning [Recovered/Resolved]

NARRATIVE: CASE EVENT DATE: 20210618
